FAERS Safety Report 7472273-2 (Version None)
Quarter: 2011Q2

REPORT INFORMATION
  Report Type: 
  Country: None (occurrence: None)
  Receive Date: 20110511
  Receipt Date: 20110505
  Transmission Date: 20111010
  Serious: Yes (Death, Hospitalization, Other)
  Sender: FDA-Public Use
  Company Number: FR-BAYER-201044311GPV

PATIENT
  Age: 70 Year
  Sex: Male
  Weight: 52 kg

DRUGS (8)
  1. ASPIRIN [Concomitant]
     Dosage: 75 MG (DAILY DOSE), , ORAL
     Route: 048
     Dates: start: 20070101, end: 20100419
  2. ADEFOVIR DIPIVOXIL KIT [Concomitant]
     Dosage: 10 MG (DAILY DOSE), , ORAL
     Route: 048
     Dates: start: 20070101, end: 20100419
  3. TARDYFERON [Concomitant]
     Dosage: 160 MG (DAILY DOSE), , ORAL
     Route: 048
     Dates: start: 20070101, end: 20100419
  4. LAMIVUDINE [Concomitant]
     Dosage: 100 MG (DAILY DOSE), , ORAL
     Route: 048
     Dates: start: 20070101, end: 20100419
  5. ALUMINIUM PHOSPHATE [Concomitant]
     Dosage: 3 SACHETS
     Route: 048
     Dates: start: 20070101, end: 20100419
  6. NEXAVAR [Suspect]
     Indication: HEPATIC NEOPLASM MALIGNANT
     Dosage: 400 MG (DAILY DOSE), QD, ORAL
     Route: 048
     Dates: start: 20091105, end: 20091120
  7. ZOLPIDEM [Concomitant]
     Dosage: 10 MG (DAILY DOSE), , ORAL
     Route: 048
     Dates: start: 20070101, end: 20100419
  8. LASIX [Concomitant]
     Dosage: 40 MG (DAILY DOSE), , ORAL
     Route: 048
     Dates: start: 20070101, end: 20100419

REACTIONS (2)
  - HEPATIC ENCEPHALOPATHY [None]
  - HEPATIC NEOPLASM MALIGNANT [None]
